FAERS Safety Report 9172903 (Version 2)
Quarter: 2015Q2

REPORT INFORMATION
  Report Type: Spontaneous
  Country: DE (occurrence: DE)
  Receive Date: 20130319
  Receipt Date: 20150508
  Transmission Date: 20150821
  Serious: Yes (Hospitalization)
  Sender: FDA-Public Use
  Company Number: DE-OTSUKA-EU-2012-10137

PATIENT
  Age: 50 Year
  Sex: Male

DRUGS (15)
  1. SAMSCA [Suspect]
     Active Substance: TOLVAPTAN
     Indication: INAPPROPRIATE ANTIDIURETIC HORMONE SECRETION
     Dosage: 15 MG, UNK
     Route: 065
  2. SAMSCA [Suspect]
     Active Substance: TOLVAPTAN
     Dosage: 45 MG
     Route: 065
     Dates: start: 201211
  3. SAMSCA [Suspect]
     Active Substance: TOLVAPTAN
     Dosage: 30 MG, UNK
     Route: 065
  4. SAMSCA [Suspect]
     Active Substance: TOLVAPTAN
     Dosage: 30 MG, QD
     Route: 065
  5. PANTOPRAZOLE [Concomitant]
     Active Substance: PANTOPRAZOLE SODIUM
     Indication: GASTRITIS
     Dosage: 20 MG, BID
     Route: 048
     Dates: start: 20110905
  6. CISPLATIN. [Concomitant]
     Active Substance: CISPLATIN
     Indication: NEOPLASM MALIGNANT
     Dosage: UNK
     Route: 065
     Dates: start: 200605, end: 200606
  7. LORAZEPAM. [Concomitant]
     Active Substance: LORAZEPAM
     Indication: PRODUCT USED FOR UNKNOWN INDICATION
     Dosage: UNK
     Route: 065
  8. DUROGESIC [Concomitant]
     Active Substance: FENTANYL
     Indication: TUMOUR PAIN
     Dosage: 25 ?G/H, EVERY THIRD DAY
     Dates: start: 2006
  9. SAMSCA [Suspect]
     Active Substance: TOLVAPTAN
     Dosage: 15 MG
     Route: 065
     Dates: start: 2012
  10. SAMSCA [Suspect]
     Active Substance: TOLVAPTAN
     Dosage: 15 MG, TIW
     Route: 065
     Dates: start: 201204, end: 201204
  11. BISOPROLOL [Concomitant]
     Active Substance: BISOPROLOL
     Indication: SINUS TACHYCARDIA
     Dosage: 1.25 MG, BID
     Route: 048
     Dates: start: 20110904
  12. LEVETIRACETAM. [Concomitant]
     Active Substance: LEVETIRACETAM
     Indication: PRODUCT USED FOR UNKNOWN INDICATION
     Dosage: UNK
     Route: 065
  13. PAROXETINE [Concomitant]
     Active Substance: PAROXETINE\PAROXETINE HYDROCHLORIDE
     Indication: PRODUCT USED FOR UNKNOWN INDICATION
     Route: 065
  14. SAMSCA [Suspect]
     Active Substance: TOLVAPTAN
     Dosage: 15 MG, QD
     Route: 048
     Dates: start: 20120227, end: 201204
  15. BROMAZEPAM [Concomitant]
     Active Substance: BROMAZEPAM
     Indication: PRODUCT USED FOR UNKNOWN INDICATION
     Route: 065

REACTIONS (7)
  - Hyponatraemia [Unknown]
  - Blood potassium increased [Recovered/Resolved]
  - Hyperkalaemia [Unknown]
  - Chronic obstructive pulmonary disease [Unknown]
  - Blood sodium decreased [Recovered/Resolved]
  - Incorrect drug administration rate [Unknown]
  - Pneumonia [Unknown]

NARRATIVE: CASE EVENT DATE: 2012
